FAERS Safety Report 15482509 (Version 1)
Quarter: 2018Q4

REPORT INFORMATION
  Report Type: Spontaneous
  Country: US (occurrence: US)
  Receive Date: 20181010
  Receipt Date: 20181010
  Transmission Date: 20190205
  Serious: No
  Sender: FDA-Public Use
  Company Number: US-SA-2018SA276949

PATIENT
  Age: 22 Year
  Sex: Male

DRUGS (2)
  1. FLUARIX NOS [Concomitant]
     Active Substance: INFLUENZA VIRUS VACCINE
  2. TUBERSOL [Suspect]
     Active Substance: TUBERCULIN PURIFIED PROTEIN DERIVATIVE
     Indication: TUBERCULIN TEST
     Dosage: 0.5 ML, 1X
     Route: 030
     Dates: start: 20181002

REACTIONS (4)
  - Overdose [Unknown]
  - Product storage error [Unknown]
  - Poor quality product administered [Unknown]
  - Incorrect route of product administration [Unknown]
